FAERS Safety Report 15387469 (Version 1)
Quarter: 2018Q3

REPORT INFORMATION
  Report Type: Spontaneous
  Country: JP (occurrence: JP)
  Receive Date: 20180914
  Receipt Date: 20180914
  Transmission Date: 20181010
  Serious: Yes (Life-Threatening, Hospitalization)
  Sender: FDA-Public Use
  Company Number: JP-JUBILANT CADISTA PHARMACEUTICALS-2018JUB00371

PATIENT
  Age: 73 Year
  Sex: Female

DRUGS (4)
  1. LORAZEPAM. [Suspect]
     Active Substance: LORAZEPAM
     Indication: HEADACHE
     Dosage: UNK
     Route: 065
  2. ADRENALINE [Suspect]
     Active Substance: EPINEPHRINE
     Indication: PULSELESS ELECTRICAL ACTIVITY
     Dosage: UNK, ONCE
     Route: 065
  3. ESCITALOPRAM [Suspect]
     Active Substance: ESCITALOPRAM OXALATE
     Indication: HEADACHE
     Route: 065
  4. ADRENALINE [Suspect]
     Active Substance: EPINEPHRINE
     Dosage: THREE INJECTIONS
     Route: 065

REACTIONS (3)
  - Pulseless electrical activity [Recovered/Resolved]
  - Left ventricle outflow tract obstruction [Recovered/Resolved]
  - Shock [Recovered/Resolved]
